FAERS Safety Report 4632367-3 (Version None)
Quarter: 2005Q2

REPORT INFORMATION
  Report Type: 
  Country: None (occurrence: None)
  Receive Date: 20050411
  Receipt Date: 20050405
  Transmission Date: 20051028
  Serious: Yes (Other)
  Sender: FDA-Public Use
  Company Number: US-GLAXOSMITHKLINE-A0552781A

PATIENT
  Age: 45 Year
  Sex: Female

DRUGS (3)
  1. PAXIL CR [Suspect]
     Indication: GENERALISED ANXIETY DISORDER
     Dosage: 12.5MG PER DAY
     Route: 048
  2. SINGULAIR [Concomitant]
  3. TARKA [Concomitant]

REACTIONS (3)
  - DEPRESSION [None]
  - SUICIDAL IDEATION [None]
  - WEIGHT INCREASED [None]
